FAERS Safety Report 8350471-3 (Version None)
Quarter: 2012Q2

REPORT INFORMATION
  Report Type: 
  Country: None (occurrence: None)
  Receive Date: 20120510
  Receipt Date: 20120507
  Transmission Date: 20120825
  Serious: Yes (Disabling)
  Sender: FDA-Public Use
  Company Number: GB-GLAXOSMITHKLINE-B0799864A

PATIENT
  Sex: Male

DRUGS (1)
  1. NICOTINE [Suspect]
     Dates: start: 20120116

REACTIONS (1)
  - LOSS OF LIBIDO [None]
